FAERS Safety Report 5931051-3 (Version None)
Quarter: 2008Q4

REPORT INFORMATION
  Report Type: 
  Country: None (occurrence: None)
  Receive Date: 20081022
  Receipt Date: 20081008
  Transmission Date: 20090506
  Serious: Yes (Other)
  Sender: FDA-Public Use
  Company Number: 2008S1018568

PATIENT
  Age: 14 Year
  Sex: Female

DRUGS (1)
  1. CLARITHROMYCIN [Suspect]
     Indication: ACNE
     Dosage: 1 DF; TWICE A DAY ORAL
     Route: 048
     Dates: start: 20080529, end: 20080614

REACTIONS (4)
  - ABNORMAL BEHAVIOUR [None]
  - AGGRESSION [None]
  - ANXIETY [None]
  - PSYCHOMOTOR HYPERACTIVITY [None]
